FAERS Safety Report 25751886 (Version 1)
Quarter: 2025Q3

REPORT INFORMATION
  Report Type: Spontaneous
  Country: US (occurrence: None)
  Receive Date: 20250901
  Receipt Date: 20250901
  Transmission Date: 20251020
  Serious: Yes (Other)
  Sender: FDA-CTU
  Company Number: None

PATIENT
  Age: 68 Year
  Sex: Male

DRUGS (1)
  1. REPATHA [Suspect]
     Active Substance: EVOLOCUMAB

REACTIONS (5)
  - Palpitations [None]
  - Headache [None]
  - Pain in extremity [None]
  - Blood pressure increased [None]
  - Neuralgia [None]

NARRATIVE: CASE EVENT DATE: 20250812
